FAERS Safety Report 4505351-8 (Version None)
Quarter: 2004Q4

REPORT INFORMATION
  Report Type: 
  Country: None (occurrence: None)
  Receive Date: 20041119
  Receipt Date: 20041012
  Transmission Date: 20050328
  Serious: Yes (Other)
  Sender: FDA-Public Use
  Company Number: 200420236GDDC

PATIENT
  Age: 42 Year
  Sex: Male
  Weight: 104 kg

DRUGS (2)
  1. LANTUS [Suspect]
     Indication: DIABETES MELLITUS
     Dosage: DOSE UNIT: UNITS
     Route: 058
     Dates: start: 20041007
  2. NOVORAPID [Concomitant]
     Dosage: DOSE: 6-10; DOSE UNIT: UNITS
     Route: 058
     Dates: start: 20041007

REACTIONS (3)
  - NEUROPATHY [None]
  - PERIPHERAL COLDNESS [None]
  - SENSORY DISTURBANCE [None]
